FAERS Safety Report 8172792-X (Version None)
Quarter: 2012Q1

REPORT INFORMATION
  Report Type: 
  Country: None (occurrence: None)
  Receive Date: 20120223
  Receipt Date: 20120209
  Transmission Date: 20120608
  Serious: Yes (Other)
  Sender: FDA-Public Use
  Company Number: 2012CP000021

PATIENT
  Age: 38 Year
  Sex: Male

DRUGS (3)
  1. ACETAMINOPHEN [Suspect]
     Indication: PYREXIA
     Dosage: 1 GRAM;1 DAY;IV
     Route: 042
     Dates: start: 20120206
  2. ACETAMINOPHEN [Suspect]
     Indication: BACK PAIN
     Dosage: 1 GRAM;1 DAY;IV
     Route: 042
     Dates: start: 20120206
  3. ACUPAN [Concomitant]

REACTIONS (5)
  - DYSPNOEA [None]
  - CHOKING [None]
  - DRUG HYPERSENSITIVITY [None]
  - ASPHYXIA [None]
  - TRANSFUSION RELATED COMPLICATION [None]
